FAERS Safety Report 6415793-1 (Version None)
Quarter: 2009Q4

REPORT INFORMATION
  Report Type: 
  Country: None (occurrence: None)
  Receive Date: 20091027
  Receipt Date: 20091015
  Transmission Date: 20100525
  Serious: Yes (Hospitalization)
  Sender: FDA-Public Use
  Company Number: FR-PFIZER INC-2009283375

PATIENT
  Age: 44 Year

DRUGS (11)
  1. TRIFLUCAN [Suspect]
     Indication: ORAL FUNGAL INFECTION
     Dosage: 200 MG, 2X/DAY
     Route: 048
     Dates: start: 20090829, end: 20090831
  2. CONTRAMAL [Suspect]
     Dosage: 100 MG, 2X/DAY
     Route: 048
     Dates: start: 20090821, end: 20090831
  3. LYRICA [Concomitant]
  4. KEPPRA [Concomitant]
  5. MODURETIC 5-50 [Concomitant]
  6. KERLONE [Concomitant]
  7. NEXIUM [Concomitant]
  8. URBANYL [Concomitant]
  9. NEULEPTIL [Concomitant]
     Route: 048
  10. DEPAKINE CHRONO [Concomitant]
  11. ASPEGIC 1000 [Concomitant]

REACTIONS (1)
  - ENCEPHALOPATHY [None]
